FAERS Safety Report 24272509 (Version 2)
Quarter: 2024Q3

REPORT INFORMATION
  Report Type: Report from Study
  Country: KR (occurrence: KR)
  Receive Date: 20240902
  Receipt Date: 20240909
  Transmission Date: 20241017
  Serious: Yes (Hospitalization, Other)
  Sender: ABBVIE
  Company Number: KR-ABBVIE-5901086

PATIENT
  Age: 37 Year
  Sex: Male
  Weight: 88 kg

DRUGS (15)
  1. SKYRIZI [Suspect]
     Active Substance: RISANKIZUMAB-RZAA
     Indication: Psoriasis
     Dosage: FREQUENCY TEXT: ONCE
     Route: 058
     Dates: start: 20230525, end: 20230525
  2. SKYRIZI [Suspect]
     Active Substance: RISANKIZUMAB-RZAA
     Dosage: FREQUENCY TEXT: ONCE
     Route: 058
     Dates: start: 20230223, end: 20230223
  3. SKYRIZI [Suspect]
     Active Substance: RISANKIZUMAB-RZAA
     Route: 058
     Dates: start: 20230824
  4. SKYRIZI [Suspect]
     Active Substance: RISANKIZUMAB-RZAA
     Dosage: FREQUENCY TEXT: ONCE
     Route: 058
     Dates: start: 20220825, end: 20220825
  5. SKYRIZI [Suspect]
     Active Substance: RISANKIZUMAB-RZAA
     Dosage: FREQUENCY TEXT: ONCE
     Route: 058
     Dates: start: 20220721, end: 20220721
  6. SKYRIZI [Suspect]
     Active Substance: RISANKIZUMAB-RZAA
     Dosage: FREQUENCY TEXT: ONCE
     Route: 058
     Dates: start: 20221124, end: 20221124
  7. EMPAGLIFLOZIN\METFORMIN HYDROCHLORIDE [Concomitant]
     Active Substance: EMPAGLIFLOZIN\METFORMIN HYDROCHLORIDE
     Indication: Type 2 diabetes mellitus
     Route: 048
     Dates: start: 20220707, end: 20230524
  8. DIABEX [Concomitant]
     Active Substance: METFORMIN HYDROCHLORIDE
     Indication: Type 2 diabetes mellitus
     Dosage: 500 MG
     Route: 048
     Dates: start: 20211230
  9. METHOTREXATE [Concomitant]
     Active Substance: METHOTREXATE
     Indication: Psoriasis
     Dosage: 2.5 MG
     Route: 048
     Dates: start: 20211007, end: 20220824
  10. FOLCID [Concomitant]
     Indication: Vitamin supplementation
     Route: 048
     Dates: start: 20211007, end: 20220824
  11. QSYMIA [Concomitant]
     Active Substance: PHENTERMINE HYDROCHLORIDE\TOPIRAMATE
     Indication: Type 2 diabetes mellitus
     Dosage: 3.75MG/23MG
     Route: 048
     Dates: start: 20230824, end: 20230922
  12. AVODART [Concomitant]
     Active Substance: DUTASTERIDE
     Indication: Androgenetic alopecia
     Dosage: TIME INTERVAL: AS NECESSARY: SC 0.5MG
     Route: 048
     Dates: start: 20211007
  13. DIABEX [Concomitant]
     Active Substance: METFORMIN HYDROCHLORIDE
     Indication: Type 2 diabetes mellitus
     Dosage: 1000MG
     Route: 048
     Dates: start: 20230525
  14. TRULICITY [Concomitant]
     Active Substance: DULAGLUTIDE
     Indication: Type 2 diabetes mellitus
     Dosage: 0.75MG/0.5ML PEN
     Route: 058
     Dates: start: 20230525, end: 20230831
  15. TUVERO [Concomitant]
     Indication: Dyslipidaemia
     Dosage: 30/5MG
     Route: 048
     Dates: start: 20211230

REACTIONS (1)
  - Peritonitis [Recovered/Resolved]

NARRATIVE: CASE EVENT DATE: 20221201
